FAERS Safety Report 18627112 (Version 1)
Quarter: 2020Q4

REPORT INFORMATION
  Report Type: Spontaneous
  Country: PT (occurrence: PT)
  Receive Date: 20201217
  Receipt Date: 20201217
  Transmission Date: 20210114
  Serious: Yes (Hospitalization, Other)
  Sender: FDA-Public Use
  Company Number: PT-BAUSCH-BL-2020-035829

PATIENT
  Age: 48 Year
  Sex: Male

DRUGS (3)
  1. MESALAZINE [Suspect]
     Active Substance: MESALAMINE
     Indication: CROHN^S DISEASE
     Route: 065
  2. AZATHIOPRINE. [Suspect]
     Active Substance: AZATHIOPRINE
     Indication: CROHN^S DISEASE
     Route: 065
  3. INFLIXIMAB [Suspect]
     Active Substance: INFLIXIMAB
     Indication: CROHN^S DISEASE
     Route: 065

REACTIONS (5)
  - Hypokalaemia [Unknown]
  - Hypoxia [Unknown]
  - Pulmonary granuloma [Recovered/Resolved]
  - Pulmonary tuberculosis [Recovered/Resolved]
  - Atelectasis [Recovered/Resolved]
